FAERS Safety Report 20467557 (Version 1)
Quarter: 2022Q1

REPORT INFORMATION
  Report Type: Spontaneous
  Country: US (occurrence: US)
  Receive Date: 20220214
  Receipt Date: 20220214
  Transmission Date: 20220423
  Serious: Yes (Other)
  Sender: FDA-Public Use
  Company Number: US-LUPIN PHARMACEUTICALS INC.-2022-01841

PATIENT
  Age: 34 Year
  Sex: Female

DRUGS (16)
  1. CETIRIZINE [Suspect]
     Active Substance: CETIRIZINE HYDROCHLORIDE
     Indication: Alopecia areata
     Dosage: UNK
     Route: 061
  2. CETIRIZINE [Suspect]
     Active Substance: CETIRIZINE HYDROCHLORIDE
     Indication: Dermatitis atopic
  3. TRIAMCINOLONE [Suspect]
     Active Substance: TRIAMCINOLONE
     Indication: Alopecia areata
     Dosage: 10 MILLIGRAM/KILOGRAM
     Route: 026
  4. TRIAMCINOLONE [Suspect]
     Active Substance: TRIAMCINOLONE
     Indication: Dermatitis atopic
  5. FLUOCINONIDE [Suspect]
     Active Substance: FLUOCINONIDE
     Indication: Alopecia areata
     Dosage: UNK
     Route: 061
  6. FLUOCINONIDE [Suspect]
     Active Substance: FLUOCINONIDE
     Indication: Dermatitis atopic
  7. CAFFEINE [Suspect]
     Active Substance: CAFFEINE
     Indication: Alopecia areata
     Dosage: UNK UNK, QD
     Route: 065
  8. CAFFEINE [Suspect]
     Active Substance: CAFFEINE
     Indication: Dermatitis atopic
  9. KETOCONAZOLE [Suspect]
     Active Substance: KETOCONAZOLE
     Indication: Alopecia areata
     Dosage: UNK
     Route: 065
  10. KETOCONAZOLE [Suspect]
     Active Substance: KETOCONAZOLE
     Indication: Dermatitis atopic
  11. CICLOPIROX [Suspect]
     Active Substance: CICLOPIROX
     Indication: Alopecia areata
     Dosage: UNK
     Route: 065
  12. CICLOPIROX [Suspect]
     Active Substance: CICLOPIROX
     Indication: Dermatitis atopic
  13. CYCLOSPORINE [Concomitant]
     Active Substance: CYCLOSPORINE
     Indication: Alopecia areata
     Dosage: 100 MG, BID
     Route: 065
  14. CYCLOSPORINE [Concomitant]
     Active Substance: CYCLOSPORINE
     Indication: Dermatitis atopic
  15. TOFACITINIB [Concomitant]
     Active Substance: TOFACITINIB
     Indication: Alopecia areata
     Dosage: UNK
     Route: 061
  16. TOFACITINIB [Concomitant]
     Active Substance: TOFACITINIB
     Indication: Dermatitis atopic

REACTIONS (1)
  - Drug ineffective [Unknown]
